FAERS Safety Report 13055374 (Version 1)
Quarter: 2016Q4

REPORT INFORMATION
  Report Type: Report from Study
  Country: US (occurrence: US)
  Receive Date: 20161222
  Receipt Date: 20161222
  Transmission Date: 20170207
  Serious: Yes (Other)
  Sender: FDA-Public Use
  Company Number: US-BAXALTA-2016BLT009357

PATIENT
  Sex: Female

DRUGS (2)
  1. IMMUNOGLOBULIN, NORMAL HUMAN [Suspect]
     Active Substance: HUMAN IMMUNOGLOBULIN G
     Indication: IMMUNODEFICIENCY COMMON VARIABLE
     Dosage: UNK
     Route: 042
  2. HYQVIA [Suspect]
     Active Substance: HUMAN IMMUNOGLOBULIN G\HYALURONIDASE RECOMBINANT HUMAN
     Indication: IMMUNODEFICIENCY COMMON VARIABLE
     Dosage: UNK
     Route: 065
     Dates: start: 201602

REACTIONS (10)
  - Hepatic enzyme increased [Unknown]
  - Sepsis [Unknown]
  - Osteonecrosis [Unknown]
  - Pain [Unknown]
  - Monoparesis [Unknown]
  - White blood cell count increased [Unknown]
  - Pain in extremity [Unknown]
  - Gait disturbance [Unknown]
  - Skin tightness [Unknown]
  - Hypoaesthesia [Unknown]
